FAERS Safety Report 18668664 (Version 5)
Quarter: 2024Q3

REPORT INFORMATION
  Report Type: Spontaneous
  Country: US (occurrence: US)
  Receive Date: 20201228
  Receipt Date: 20240829
  Transmission Date: 20241016
  Serious: Yes (Hospitalization, Other)
  Sender: GLAXOSMITHKLINE
  Company Number: US-GSKCCFUS-CASE-00931340_AE-55058

PATIENT

DRUGS (3)
  1. NUCALA [Suspect]
     Active Substance: MEPOLIZUMAB
     Indication: Asthma
     Dosage: UNK, MO
     Dates: start: 202010
  2. VENTOLIN HFA [Suspect]
     Active Substance: ALBUTEROL SULFATE
     Indication: Product used for unknown indication
     Dosage: UNK, AS NEEDED
  3. METOPROLOL [Suspect]
     Active Substance: METOPROLOL
     Indication: Cardiac disorder
     Dosage: UNK

REACTIONS (32)
  - Asthma [Unknown]
  - Oxygen saturation decreased [Unknown]
  - Tremor [Recovered/Resolved]
  - Hallucination, visual [Unknown]
  - Pulmonary oedema [Unknown]
  - Pneumonia [Unknown]
  - Gait disturbance [Unknown]
  - Dyspnoea [Unknown]
  - Wheezing [Unknown]
  - Chest discomfort [Unknown]
  - Speech disorder [Unknown]
  - Dizziness [Unknown]
  - Cough [Unknown]
  - Blood pressure increased [Unknown]
  - Chest pain [Not Recovered/Not Resolved]
  - Stress [Unknown]
  - Hypoaesthesia [Recovered/Resolved]
  - Delusion [Recovered/Resolved]
  - Hyperhidrosis [Recovered/Resolved]
  - Feeling hot [Recovered/Resolved]
  - Feeling cold [Recovered/Resolved]
  - Chills [Recovered/Resolved]
  - Eating disorder [Recovered/Resolved]
  - Fatigue [Not Recovered/Not Resolved]
  - SARS-CoV-2 test positive [Unknown]
  - Arthralgia [Unknown]
  - Bone pain [Unknown]
  - Staphylococcal infection [Unknown]
  - Sinus disorder [Not Recovered/Not Resolved]
  - Sputum discoloured [Unknown]
  - Quarantine [Unknown]
  - Product dose omission issue [Unknown]

NARRATIVE: CASE EVENT DATE: 20201030
